FAERS Safety Report 21438740 (Version 1)
Quarter: 2022Q4

REPORT INFORMATION
  Report Type: Report from Study
  Country: ES (occurrence: ES)
  Receive Date: 20221011
  Receipt Date: 20221011
  Transmission Date: 20230113
  Serious: Yes (Life-Threatening, Hospitalization, Other)
  Sender: FDA-Public Use
  Company Number: ES-BIOGEN-2022BI01159771

PATIENT
  Age: 40 Year
  Sex: Female

DRUGS (3)
  1. TYSABRI [Suspect]
     Active Substance: NATALIZUMAB
     Indication: Multiple sclerosis
     Route: 050
     Dates: start: 20120320
  2. ETHINILESTRADIOL/DROSPIRENONA [Concomitant]
     Indication: Contraception
     Route: 050
  3. DAFLON [Concomitant]
     Indication: Peripheral venous disease
     Dosage: 450 MG ORAL 12H
     Route: 050

REACTIONS (1)
  - Pulmonary embolism [Recovered/Resolved]

NARRATIVE: CASE EVENT DATE: 20220926
